FAERS Safety Report 8443291 (Version 7)
Quarter: 2013Q4

REPORT INFORMATION
  Report Type: Report from Study
  Country: PL (occurrence: PL)
  Receive Date: 20120306
  Receipt Date: 20131212
  Transmission Date: 20140711
  Serious: Yes (Death)
  Sender: FDA-Public Use
  Company Number: PL-ROCHE-1044870

PATIENT
  Age: 52 Year
  Sex: Female
  Weight: 68 kg

DRUGS (9)
  1. METHOXY POLYETHYLENE GLYCOL-EPOETIN BETA [Suspect]
     Indication: NEPHROGENIC ANAEMIA
     Dosage: LAST DOSE PRIOR TO SAE 05 DEC 2011
     Route: 058
     Dates: start: 20110812, end: 20111212
  2. OMEPRAZOLE [Concomitant]
     Route: 065
     Dates: start: 20070715, end: 20111212
  3. CALCIUM CARBONATE [Concomitant]
     Route: 065
     Dates: start: 20060524
  4. SIMVASTATIN [Concomitant]
     Route: 065
     Dates: start: 20090815, end: 20111212
  5. ACETYLSALICYLIC ACID [Concomitant]
     Route: 065
     Dates: start: 20090615
  6. FUROSEMIDE [Concomitant]
     Route: 065
     Dates: start: 20060524
  7. VITAMIN B COMPLEX [Concomitant]
     Route: 065
     Dates: start: 20090615
  8. LORATADINUM [Concomitant]
  9. CETIRIZINA [Concomitant]

REACTIONS (1)
  - Idiopathic pulmonary fibrosis [Fatal]
